FAERS Safety Report 6766165-1 (Version None)
Quarter: 2010Q2

REPORT INFORMATION
  Report Type: 
  Country: None (occurrence: None)
  Receive Date: 20100611
  Receipt Date: 20100601
  Transmission Date: 20101027
  Serious: Yes (Other)
  Sender: FDA-Public Use
  Company Number: CA-JNJFOC-20090907527

PATIENT
  Sex: Female
  Weight: 55 kg

DRUGS (6)
  1. REMICADE [Suspect]
     Indication: CROHN'S DISEASE
     Dosage: 300MG
     Route: 042
  2. REMICADE [Suspect]
     Dosage: 600 MG
     Route: 042
  3. REMICADE [Suspect]
     Dosage: 600 MG
     Route: 042
  4. IMURAN [Concomitant]
  5. ORAL CONTRACEPTIVE [Concomitant]
     Route: 048
  6. CELEBREX [Concomitant]
     Dosage: ONCE OR TWICE DAILY
     Route: 048

REACTIONS (1)
  - LUPUS-LIKE SYNDROME [None]
